FAERS Safety Report 5772082-6 (Version None)
Quarter: 2008Q2

REPORT INFORMATION
  Report Type: 
  Country: None (occurrence: None)
  Receive Date: 20080601
  Receipt Date: 20080111
  Transmission Date: 20081010
  Serious: No
  Sender: FDA-Public Use
  Company Number: US200709000415

PATIENT
  Age: 59 Year
  Sex: Female
  Weight: 136.1 kg

DRUGS (12)
  1. BYETTA [Suspect]
     Indication: TYPE 2 DIABETES MELLITUS
     Dosage: 5 UG, 2/D, SUBCUTANEOUS, 10 UG, 2/D, SUBCUTANEOUS, 10 UG, 2/D, SUBCUTANEOUS
     Route: 058
     Dates: start: 20070701, end: 20070801
  2. BYETTA [Suspect]
     Indication: TYPE 2 DIABETES MELLITUS
     Dosage: 5 UG, 2/D, SUBCUTANEOUS, 10 UG, 2/D, SUBCUTANEOUS, 10 UG, 2/D, SUBCUTANEOUS
     Route: 058
     Dates: start: 20070701
  3. BYETTA [Suspect]
     Indication: TYPE 2 DIABETES MELLITUS
     Dosage: 5 UG, 2/D, SUBCUTANEOUS, 10 UG, 2/D, SUBCUTANEOUS, 10 UG, 2/D, SUBCUTANEOUS
     Route: 058
     Dates: start: 20070801
  4. BYETTA [Suspect]
  5. INSULIN (INSULIN) [Concomitant]
  6. DRUG USED IN DIABETES [Concomitant]
  7. LEVEMIR (INSULIN DETEMIR) [Concomitant]
  8. AMARYL [Concomitant]
  9. METFORMIN HCL [Concomitant]
  10. ACTOS [Concomitant]
  11. CARTIA XT [Concomitant]
  12. CLONIDINE [Concomitant]

REACTIONS (1)
  - BLOOD GLUCOSE INCREASED [None]
